FAERS Safety Report 10038596 (Version 1)
Quarter: 2014Q1

REPORT INFORMATION
  Report Type: Spontaneous
  Country: SA (occurrence: SA)
  Receive Date: 20140326
  Receipt Date: 20140326
  Transmission Date: 20141002
  Serious: Yes (Death, Hospitalization, Other)
  Sender: FDA-Public Use
  Company Number: SA-PFIZER INC-2014082051

PATIENT
  Age: 45 Year
  Sex: Female

DRUGS (3)
  1. PHENYTOIN SODIUM [Suspect]
     Indication: PARTIAL SEIZURES
     Dosage: 100 MG, 3X/DAY
  2. DEXAMETHASONE [Concomitant]
     Dosage: 4 MG, 2X/DAY
  3. RANITIDINE [Concomitant]
     Dosage: 150 MG, 3X/DAY

REACTIONS (2)
  - Toxic epidermal necrolysis [Fatal]
  - Sepsis [Fatal]
